FAERS Safety Report 5221707-2 (Version None)
Quarter: 2007Q1

REPORT INFORMATION
  Report Type: 
  Country: None (occurrence: None)
  Receive Date: 20070129
  Receipt Date: 20070123
  Transmission Date: 20070707
  Serious: Yes (Other)
  Sender: FDA-Public Use
  Company Number: FR-SHR-FR-2007-002237

PATIENT
  Age: 36 Year
  Sex: Female

DRUGS (1)
  1. MIRENA [Suspect]
     Indication: CONTRACEPTION
     Dosage: 20 A?G/DAY, CONT
     Route: 015
     Dates: start: 20030401

REACTIONS (5)
  - BREAST ABSCESS [None]
  - BREAST DISCHARGE [None]
  - BREAST MASS [None]
  - BREAST PAIN [None]
  - VAGINAL DISCHARGE [None]
